FAERS Safety Report 14173577 (Version 2)
Quarter: 2018Q1

REPORT INFORMATION
  Report Type: Spontaneous
  Country: US (occurrence: US)
  Receive Date: 20171109
  Receipt Date: 20180117
  Transmission Date: 20180508
  Serious: No
  Sender: FDA-Public Use
  Company Number: US-PFIZER INC-2017482121

PATIENT
  Age: 73 Year
  Sex: Female
  Weight: 80 kg

DRUGS (3)
  1. IBRANCE [Suspect]
     Active Substance: PALBOCICLIB
     Dosage: 125 MG, CYCLIC (ONCE A DAY FOR 21 DAYS ON AND 7 DAYS OFF)
     Route: 048
     Dates: start: 201703
  2. IBRANCE [Suspect]
     Active Substance: PALBOCICLIB
     Indication: NEOPLASM MALIGNANT
     Dosage: 125 MG, CYCLIC (125MG ONCE A DAY BY MOUTH FOR 21 DAYS THEN 7 DAYS OFF)
     Route: 048
     Dates: start: 201702
  3. FASLODEX [Suspect]
     Active Substance: FULVESTRANT
     Indication: NEOPLASM MALIGNANT
     Dosage: 500 ML, MONTHLY (250 CCS, INJECTION, IN HER BUTT CHEEKS, TWO SHOTS TOTAL OF 500CCS ONCE A MONTH)
     Dates: start: 201703, end: 2017

REACTIONS (1)
  - Oral pain [Unknown]
